FAERS Safety Report 25747178 (Version 2)
Quarter: 2025Q4

REPORT INFORMATION
  Report Type: Report from Study
  Country: US (occurrence: US)
  Receive Date: 20250901
  Receipt Date: 20251001
  Transmission Date: 20260118
  Serious: No
  Sender: ABBVIE
  Company Number: US-ABBVIE-6438546

PATIENT
  Age: 51 Year
  Sex: Male

DRUGS (1)
  1. VYALEV [Suspect]
     Active Substance: FOSCARBIDOPA\FOSLEVODOPA
     Indication: Parkinson^s disease
     Route: 058
     Dates: start: 202508, end: 20250827

REACTIONS (8)
  - Injection site reaction [Not Recovered/Not Resolved]
  - Infusion site induration [Not Recovered/Not Resolved]
  - Infusion site warmth [Not Recovered/Not Resolved]
  - Device use error [Not Recovered/Not Resolved]
  - Infusion site rash [Not Recovered/Not Resolved]
  - Injection site pain [Unknown]
  - Injection site reaction [Unknown]
  - Medical device discomfort [Unknown]

NARRATIVE: CASE EVENT DATE: 20250101
